FAERS Safety Report 11179205 (Version 1)
Quarter: 2015Q2

REPORT INFORMATION
  Report Type: Spontaneous
  Country: US (occurrence: US)
  Receive Date: 20150610
  Receipt Date: 20150610
  Transmission Date: 20150821
  Serious: Yes (Other)
  Sender: FDA-Public Use
  Company Number: US-GILEAD-2015-0157263

PATIENT
  Age: 67 Year
  Sex: Female

DRUGS (1)
  1. HARVONI [Suspect]
     Active Substance: LEDIPASVIR\SOFOSBUVIR
     Indication: PRODUCT USED FOR UNKNOWN INDICATION
     Dosage: UNK
     Route: 065
     Dates: start: 201505

REACTIONS (6)
  - Back disorder [Unknown]
  - Nasal congestion [Unknown]
  - Pyrexia [Unknown]
  - Bronchitis [Recovering/Resolving]
  - Headache [Unknown]
  - Exfoliative rash [Unknown]

NARRATIVE: CASE EVENT DATE: 2015
